FAERS Safety Report 17008899 (Version 1)
Quarter: 2019Q4

REPORT INFORMATION
  Report Type: Spontaneous
  Country: US (occurrence: US)
  Receive Date: 20190930
  Receipt Date: 20190930
  Transmission Date: 20200122
  Serious: No
  Sender: FDA-Public Use
  Company Number: None

PATIENT
  Age: 33 Year
  Sex: Female

DRUGS (1)
  1. ENBREL [Suspect]
     Active Substance: ETANERCEPT
     Indication: PSORIASIS
     Route: 058
     Dates: start: 20080901, end: 20190901

REACTIONS (3)
  - Drug specific antibody present [None]
  - Pustular psoriasis [None]
  - Therapy cessation [None]

NARRATIVE: CASE EVENT DATE: 20190901
